FAERS Safety Report 15791363 (Version 2)
Quarter: 2019Q1

REPORT INFORMATION
  Report Type: Spontaneous
  Country: DE (occurrence: DE)
  Receive Date: 20190104
  Receipt Date: 20190315
  Transmission Date: 20190417
  Serious: Yes (Disabling, Other)
  Sender: FDA-Public Use
  Company Number: DE-BAUSCH-BL-2019-000238

PATIENT
  Age: 21 Year
  Sex: Female
  Weight: 51 kg

DRUGS (1)
  1. ZYKLOLAT EDO [Suspect]
     Active Substance: CYCLOPENTOLATE
     Indication: MYDRIASIS
     Dosage: 0.5 ML/ 5 PLUS DROPS, 5 PLUS DROPS. USED ONLY ONCE
     Route: 065
     Dates: start: 20180901, end: 20180901

REACTIONS (26)
  - Dizziness [Recovered/Resolved]
  - Somnambulism [Recovered/Resolved]
  - Visual impairment [Recovered/Resolved]
  - Disorientation [Recovered/Resolved]
  - Asthenia [Recovered/Resolved]
  - Cardiovascular disorder [Recovered/Resolved]
  - Chills [Recovered/Resolved]
  - Hypoaesthesia oral [Recovered/Resolved]
  - Feeling abnormal [Recovered/Resolved]
  - Hypoaesthesia [Recovered/Resolved]
  - Vision blurred [Recovered/Resolved]
  - Extra dose administered [Unknown]
  - Blister [Recovered/Resolved]
  - Paranoia [Recovered/Resolved]
  - Strabismus [Recovered/Resolved]
  - Unresponsive to stimuli [Recovered/Resolved]
  - Dysphonia [Recovered/Resolved]
  - Peripheral coldness [Recovered/Resolved]
  - Gait disturbance [Recovered/Resolved]
  - Paralysis [Recovered/Resolved]
  - Emotional disorder [Recovered/Resolved]
  - Dry mouth [Recovered/Resolved]
  - Deafness [Recovered/Resolved]
  - Mydriasis [Recovered/Resolved]
  - Nausea [Recovered/Resolved]
  - Illusion [Recovered/Resolved]

NARRATIVE: CASE EVENT DATE: 20180901
